FAERS Safety Report 5656101-3 (Version None)
Quarter: 2008Q1

REPORT INFORMATION
  Report Type: 
  Country: None (occurrence: None)
  Receive Date: 20080305
  Receipt Date: 20080225
  Transmission Date: 20080703
  Serious: Yes (Other)
  Sender: FDA-Public Use
  Company Number: CIP08000291

PATIENT
  Age: 49 Year
  Sex: Female

DRUGS (8)
  1. ACTONEL [Suspect]
     Indication: OSTEOPENIA
     Dosage: 35 MG ONCE WEKLY, ORAL
     Route: 048
     Dates: start: 20021001, end: 20070301
  2. PLAVIX [Concomitant]
  3. LISINOPRIL [Concomitant]
  4. ASPIRIN [Concomitant]
  5. XANAX [Concomitant]
  6. CLIMARA [Concomitant]
  7. DARVOCET /00220901/ (PARACETAMOL, DEXTROPROPOXYPHENE HYDROCHLORIDE) [Concomitant]
  8. GABAPENTINE (GABAPENTIN) [Concomitant]

REACTIONS (1)
  - JAW DISORDER [None]
